FAERS Safety Report 10304919 (Version 2)
Quarter: 2014Q3

REPORT INFORMATION
  Report Type: Spontaneous
  Country: FR (occurrence: None)
  Receive Date: 20140710
  Receipt Date: 20140917
  Transmission Date: 20150326
  Serious: Yes (Other)
  Sender: FDA-Public Use
  Company Number: AXC-2014-000422

PATIENT
  Age: 67 Year
  Sex: Male

DRUGS (1)
  1. PYLERA [Suspect]
     Active Substance: BISMUTH SUBCITRATE POTASSIUM\METRONIDAZOLE\TETRACYCLINE HYDROCHLORIDE
     Indication: HELICOBACTER GASTRITIS
     Route: 048
     Dates: start: 20140527, end: 20140605

REACTIONS (6)
  - Abdominal pain upper [None]
  - Off label use [None]
  - Fatigue [None]
  - Dyspepsia [None]
  - Burning sensation [None]
  - Gait disturbance [None]

NARRATIVE: CASE EVENT DATE: 20140527
